FAERS Safety Report 9696766 (Version 2)
Quarter: 2013Q4

REPORT INFORMATION
  Report Type: Spontaneous
  Country: US (occurrence: US)
  Receive Date: 20131119
  Receipt Date: 20131119
  Transmission Date: 20140711
  Serious: No
  Sender: FDA-Public Use
  Company Number: US-GILEAD-2007-0014590

PATIENT
  Age: 69 Year
  Sex: Female
  Weight: 68.04 kg

DRUGS (14)
  1. LETAIRIS [Suspect]
     Indication: PULMONARY ARTERIAL HYPERTENSION
     Route: 048
     Dates: start: 20071016
  2. VENTAVIS [Concomitant]
     Indication: PULMONARY ARTERIAL HYPERTENSION
     Dates: start: 20061211
  3. COUMADIN [Concomitant]
     Indication: ANTICOAGULANT THERAPY
     Dosage: 1.5 DAILY
     Route: 048
     Dates: start: 2006
  4. TOPROL [Concomitant]
     Indication: ESSENTIAL HYPERTENSION
     Route: 048
     Dates: start: 2000
  5. DEMADEX [Concomitant]
     Indication: PULMONARY ARTERIAL HYPERTENSION
     Route: 048
     Dates: start: 20061212
  6. ALLOPURINOL [Concomitant]
     Indication: GOUT
     Dosage: EVERY OTHER DAY
     Route: 048
     Dates: start: 20070729
  7. K-DUR [Concomitant]
     Indication: MINERAL SUPPLEMENTATION
     Route: 048
     Dates: start: 2001
  8. ZAROXOLYN [Concomitant]
     Indication: ESSENTIAL HYPERTENSION
     Route: 048
     Dates: start: 20070615
  9. PERCOCET [Concomitant]
     Indication: PAIN
     Dosage: 1/2 - 2 X DAY
     Route: 048
     Dates: start: 20070807
  10. CENTRUM SILVER [Concomitant]
     Indication: VITAMIN SUPPLEMENTATION
     Route: 048
     Dates: start: 2002
  11. REVATIO [Concomitant]
     Dates: start: 20060421
  12. FLUTICASONE W/SALMETEROL [Concomitant]
     Dates: start: 20070727
  13. IPRATROPIUM BROMIDE [Concomitant]
     Dates: start: 20070727
  14. VITAMIN D [Concomitant]
     Dates: start: 20070808

REACTIONS (2)
  - Pruritus [Not Recovered/Not Resolved]
  - Papule [Not Recovered/Not Resolved]
